FAERS Safety Report 9798703 (Version 1)
Quarter: 2014Q1

REPORT INFORMATION
  Report Type: Spontaneous
  Country: US (occurrence: US)
  Receive Date: 20140106
  Receipt Date: 20140106
  Transmission Date: 20141002
  Serious: No
  Sender: FDA-Public Use
  Company Number: US-GILEAD-2010-0029866

PATIENT
  Sex: Male

DRUGS (10)
  1. LETAIRIS [Suspect]
     Indication: PULMONARY ARTERIAL HYPERTENSION
     Route: 048
     Dates: start: 20090601
  2. REVATIO [Concomitant]
  3. FLOLAN [Concomitant]
  4. COUMADIN [Concomitant]
  5. LASIX [Concomitant]
  6. ADVAIR DISKUS [Concomitant]
  7. ASTELIN [Concomitant]
  8. ALLOPURINOL [Concomitant]
  9. GABAPENTIN [Concomitant]
  10. K-DUR [Concomitant]

REACTIONS (2)
  - Skin irritation [Unknown]
  - Blister [Unknown]
